FAERS Safety Report 4882600-8 (Version None)
Quarter: 2005Q4

REPORT INFORMATION
  Report Type: 
  Country: None (occurrence: None)
  Receive Date: 20051201
  Receipt Date: 20050930
  Transmission Date: 20060501
  Serious: No
  Sender: FDA-Public Use
  Company Number: 2005PV002719

PATIENT
  Age: 55 Year
  Sex: Male
  Weight: 107.0489 kg

DRUGS (4)
  1. BYETTA [Suspect]
     Indication: DIABETES MELLITUS NON-INSULIN-DEPENDENT
     Dosage: 5 MCG;BID;SC
     Route: 058
     Dates: start: 20050921
  2. MOBIC [Concomitant]
  3. ASPIRIN [Concomitant]
  4. ACTOS [Concomitant]

REACTIONS (4)
  - INJECTION SITE BRUISING [None]
  - INSOMNIA [None]
  - NAUSEA [None]
  - SOMNOLENCE [None]
